FAERS Safety Report 10683466 (Version 1)
Quarter: 2014Q4

REPORT INFORMATION
  Report Type: Spontaneous
  Country: IL (occurrence: IL)
  Receive Date: 20141230
  Receipt Date: 20141230
  Transmission Date: 20150529
  Serious: Yes (Other)
  Sender: FDA-Public Use
  Company Number: IL-MALLINCKRODT-T201404599

PATIENT
  Sex: Female

DRUGS (1)
  1. OFIRMEV [Suspect]
     Active Substance: ACETAMINOPHEN
     Indication: ANALGESIC THERAPY
     Dosage: 10 MG/ML, UNK
     Route: 042

REACTIONS (3)
  - Toxic shock syndrome [Unknown]
  - Disseminated intravascular coagulation [Unknown]
  - Septic shock [Unknown]
